FAERS Safety Report 8261732-0 (Version None)
Quarter: 2012Q2

REPORT INFORMATION
  Report Type: 
  Country: None (occurrence: None)
  Receive Date: 20120405
  Receipt Date: 20120328
  Transmission Date: 20120825
  Serious: Yes (Hospitalization)
  Sender: FDA-Public Use
  Company Number: US-BAYER-2011-063812

PATIENT
  Age: 32 Year
  Sex: Female
  Weight: 86.168 kg

DRUGS (6)
  1. ZOFRAN [Concomitant]
     Dosage: UNK
     Dates: start: 20090801
  2. BACTRIM DS [Concomitant]
     Dosage: 160-800MG,
     Route: 048
     Dates: start: 20090805
  3. YASMIN [Suspect]
     Indication: CONTRACEPTION
     Dosage: UNK
     Dates: start: 20000101, end: 20090101
  4. TYLENOL TAB [Concomitant]
  5. VICODIN [Concomitant]
     Dosage: UNK
     Dates: start: 20090801
  6. PRISTIQ [Concomitant]
     Indication: DEPRESSION
     Dosage: 50 MG, UNK

REACTIONS (12)
  - CHOLECYSTITIS CHRONIC [None]
  - EMOTIONAL DISTRESS [None]
  - BILIARY COLIC [None]
  - DEPRESSION [None]
  - SCAR [None]
  - DIARRHOEA [None]
  - CONSTIPATION [None]
  - BILIARY DYSKINESIA [None]
  - ANXIETY [None]
  - DYSPEPSIA [None]
  - ABDOMINAL DISTENSION [None]
  - FLATULENCE [None]
